FAERS Safety Report 8855025 (Version 3)
Quarter: 2012Q4

REPORT INFORMATION
  Report Type: 
  Country: FR (occurrence: FR)
  Receive Date: 20121023
  Receipt Date: 20121203
  Transmission Date: 20130627
  Serious: Yes (Hospitalization)
  Sender: FDA-Public Use
  Company Number: PHHY2012FR094597

PATIENT
  Age: 52 Year
  Sex: Female
  Weight: 75 kg

DRUGS (4)
  1. AFINITOR [Suspect]
     Indication: NEUROENDOCRINE TUMOUR
     Dosage: 10 mg, daily
     Route: 048
     Dates: start: 20110203, end: 20120910
  2. AFINITOR [Suspect]
     Dosage: 5 mg, daily
     Route: 048
     Dates: end: 201209
  3. AFINITOR [Suspect]
     Dosage: 5 mg, daily
     Route: 048
  4. SANDOSTATINE [Suspect]
     Indication: NEUROENDOCRINE TUMOUR
     Dosage: 30 mg,
     Route: 030
     Dates: start: 20091210

REACTIONS (3)
  - Intestinal ischaemia [Recovered/Resolved]
  - Abdominal pain [Recovered/Resolved]
  - Mucosal inflammation [Recovered/Resolved]
